FAERS Safety Report 13178556 (Version 1)
Quarter: 2017Q1

REPORT INFORMATION
  Report Type: Spontaneous
  Country: US (occurrence: US)
  Receive Date: 20170201
  Receipt Date: 20170201
  Transmission Date: 20170428
  Serious: No
  Sender: FDA-Public Use
  Company Number: None

PATIENT
  Age: 55 Year
  Sex: Female
  Weight: 153 kg

DRUGS (1)
  1. ENBREL [Suspect]
     Active Substance: ETANERCEPT
     Indication: PSORIATIC ARTHROPATHY
     Dosage: ?          OTHER FREQUENCY:ONCE WEEKLY;?
     Route: 058
     Dates: start: 20161128, end: 20170111

REACTIONS (5)
  - Blood glucose increased [None]
  - Insomnia [None]
  - Bronchitis [None]
  - Dry mouth [None]
  - Affective disorder [None]

NARRATIVE: CASE EVENT DATE: 20170201
